FAERS Safety Report 22333393 (Version 1)
Quarter: 2023Q2

REPORT INFORMATION
  Report Type: Report from Study
  Country: US (occurrence: US)
  Receive Date: 20230517
  Receipt Date: 20230517
  Transmission Date: 20230722
  Serious: Yes (Congenital Anomaly)
  Sender: FDA-Public Use
  Company Number: US-TEVA-2023-US-2883847

PATIENT
  Sex: Female

DRUGS (2)
  1. LUBIPROSTONE [Suspect]
     Active Substance: LUBIPROSTONE
     Indication: Product used for unknown indication
     Route: 065
  2. GIVLAARI [Suspect]
     Active Substance: GIVOSIRAN SODIUM
     Indication: Product used for unknown indication
     Dosage: 237.50MG
     Route: 058
     Dates: start: 20220520

REACTIONS (3)
  - Porphyria acute [Unknown]
  - Cardiac disorder [Unknown]
  - Gastrointestinal disorder [Unknown]
